FAERS Safety Report 15677150 (Version 2)
Quarter: 2019Q1

REPORT INFORMATION
  Report Type: Spontaneous
  Country: CA (occurrence: CA)
  Receive Date: 20181130
  Receipt Date: 20190128
  Transmission Date: 20190417
  Serious: Yes (Hospitalization)
  Sender: FDA-Public Use
  Company Number: CA-MALLINCKRODT-T201805142

PATIENT
  Age: 26 Year
  Sex: Male

DRUGS (1)
  1. METHADOSE [Suspect]
     Active Substance: METHADONE HYDROCHLORIDE
     Indication: PRODUCT USED FOR UNKNOWN INDICATION
     Dosage: UNKNOWN
     Route: 048
     Dates: start: 20180719

REACTIONS (3)
  - Deafness [Recovering/Resolving]
  - Accidental exposure to product [Recovering/Resolving]
  - Rhabdomyolysis [Recovering/Resolving]
